FAERS Safety Report 8502873-X (Version None)
Quarter: 2012Q3

REPORT INFORMATION
  Report Type: 
  Country: None (occurrence: None)
  Receive Date: 20120711
  Receipt Date: 20120702
  Transmission Date: 20120928
  Serious: Yes (Hospitalization)
  Sender: FDA-Public Use
  Company Number: FR-ASTRAZENECA-2012SE45219

PATIENT
  Age: 31 Year
  Sex: Male

DRUGS (7)
  1. FERROUS FUMARATE [Concomitant]
  2. IBUPROFEN [Suspect]
     Route: 048
     Dates: start: 20110613, end: 20110613
  3. XANAX [Concomitant]
  4. TRAMADOL HCL [Concomitant]
  5. ZOMIG [Suspect]
     Route: 048
     Dates: start: 20110613, end: 20110613
  6. PREDNISONE [Concomitant]
  7. ACETAMINOPHEN [Concomitant]

REACTIONS (6)
  - BACK PAIN [None]
  - HAEMATURIA [None]
  - PROTEINURIA [None]
  - ALCOHOL POISONING [None]
  - TOXICITY TO VARIOUS AGENTS [None]
  - RENAL FAILURE ACUTE [None]
